FAERS Safety Report 11249985 (Version 1)
Quarter: 2015Q3

REPORT INFORMATION
  Report Type: Spontaneous
  Country: US (occurrence: US)
  Receive Date: 20150708
  Receipt Date: 20150708
  Transmission Date: 20151125
  Serious: Yes (Other)
  Sender: FDA-Public Use
  Company Number: US-ELI_LILLY_AND_COMPANY-US200712000279

PATIENT
  Age: 81 Year
  Sex: Male
  Weight: 63.49 kg

DRUGS (8)
  1. SYMBYAX [Suspect]
     Active Substance: FLUOXETINE HYDROCHLORIDE\OLANZAPINE
     Indication: MOOD ALTERED
     Dosage: 1 D/F, UNK
     Dates: start: 20071129, end: 20071130
  2. HERBAL NOS [Concomitant]
     Active Substance: HERBALS
  3. ASPIRIN. [Concomitant]
     Active Substance: ASPIRIN
  4. LUPRON [Concomitant]
     Active Substance: LEUPROLIDE ACETATE
  5. VITAMINS [Concomitant]
     Active Substance: VITAMINS
  6. TRELSTAR [Concomitant]
     Active Substance: TRIPTORELIN PAMOATE
  7. METOPROLOL [Concomitant]
     Active Substance: METOPROLOL
     Indication: BLOOD PRESSURE MEASUREMENT
  8. ZOCOR [Concomitant]
     Active Substance: SIMVASTATIN

REACTIONS (9)
  - Dizziness [Recovered/Resolved]
  - Gait disturbance [Unknown]
  - Face injury [Recovered/Resolved]
  - Loss of consciousness [Recovered/Resolved]
  - Dizziness [Not Recovered/Not Resolved]
  - Confusional state [Recovered/Resolved]
  - Muscle disorder [Not Recovered/Not Resolved]
  - Fall [Recovered/Resolved]
  - Vertigo [Not Recovered/Not Resolved]

NARRATIVE: CASE EVENT DATE: 20071130
